FAERS Safety Report 23816569 (Version 5)
Quarter: 2024Q4

REPORT INFORMATION
  Report Type: Spontaneous
  Country: US (occurrence: US)
  Receive Date: 20240503
  Receipt Date: 20241015
  Transmission Date: 20250115
  Serious: No
  Sender: BRISTOL-MYERS SQUIBB COMPANY
  Company Number: US-BRISTOL-MYERS SQUIBB COMPANY-2024-010687

PATIENT
  Age: 70 Year
  Sex: Female

DRUGS (5)
  1. LENALIDOMIDE [Suspect]
     Active Substance: LENALIDOMIDE
     Indication: Plasma cell myeloma
     Dosage: TAKE 1 CAPSULE BY MOUTH EVERY NIGHT AT BEDTIME FOR 21 DAYS OUT OF 28 DAYS.
     Route: 048
     Dates: start: 20230525
  2. LENALIDOMIDE [Suspect]
     Active Substance: LENALIDOMIDE
     Route: 048
  3. LENALIDOMIDE [Suspect]
     Active Substance: LENALIDOMIDE
     Dosage: TAKE 1 CAPSULE BY ?MOUTH EVERY NIGHT ?AT BEDTIME FOR 21 ?OUT OF 28 DAYS.
     Route: 048
  4. LENALIDOMIDE [Suspect]
     Active Substance: LENALIDOMIDE
     Route: 048
  5. LEVOTHYROXINE [Suspect]
     Active Substance: LEVOTHYROXINE
     Indication: Product used for unknown indication

REACTIONS (5)
  - Dyspnoea exertional [Not Recovered/Not Resolved]
  - White blood cell count decreased [Not Recovered/Not Resolved]
  - Palpitations [Unknown]
  - Product distribution issue [Unknown]
  - Therapy interrupted [Unknown]
